FAERS Safety Report 7836452-4 (Version None)
Quarter: 2011Q4

REPORT INFORMATION
  Report Type: 
  Country: None (occurrence: None)
  Receive Date: 20111024
  Receipt Date: 20110526
  Transmission Date: 20120403
  Serious: No
  Sender: FDA-Public Use
  Company Number: US-ABBOTT-11P-163-0729498-00

PATIENT
  Sex: Female
  Weight: 68.554 kg

DRUGS (7)
  1. ESTROGENIC SUBSTANCE [Concomitant]
     Indication: HORMONE LEVEL ABNORMAL
     Dates: start: 20110301
  2. LUPRON DEPOT [Suspect]
     Indication: ENDOMETRIOSIS
     Dates: start: 20110301
  3. DIVALPROEX SODIUM [Concomitant]
     Indication: BIPOLAR DISORDER
  4. LUVOX CR [Concomitant]
     Indication: OBSESSIVE-COMPULSIVE DISORDER
  5. CLONAZEPAM [Concomitant]
     Indication: ANXIETY
  6. ZOLOFT [Concomitant]
     Indication: DEPRESSION
  7. AMBIEN [Concomitant]
     Indication: INSOMNIA

REACTIONS (7)
  - MYALGIA [None]
  - FATIGUE [None]
  - BLADDER PAIN [None]
  - DYSPAREUNIA [None]
  - INSOMNIA [None]
  - ARTHRALGIA [None]
  - DECREASED APPETITE [None]
